FAERS Safety Report 15019654 (Version 1)
Quarter: 2018Q2

REPORT INFORMATION
  Report Type: Spontaneous
  Country: US (occurrence: US)
  Receive Date: 20180618
  Receipt Date: 20180618
  Transmission Date: 20180711
  Serious: No
  Sender: FDA-Public Use
  Company Number: US-ELI_LILLY_AND_COMPANY-US201806005401

PATIENT
  Age: 79 Year
  Sex: Female

DRUGS (3)
  1. TRULICITY [Suspect]
     Active Substance: DULAGLUTIDE
     Dosage: 1.5 MG, UNKNOWN
     Route: 065
  2. LANTUS [Concomitant]
     Active Substance: INSULIN GLARGINE
     Indication: TYPE 2 DIABETES MELLITUS
  3. TRULICITY [Suspect]
     Active Substance: DULAGLUTIDE
     Indication: BLOOD GLUCOSE INCREASED
     Dosage: 1.5 MG, UNKNOWN
     Route: 065
     Dates: start: 20180430

REACTIONS (7)
  - Eating disorder [Unknown]
  - Constipation [Not Recovered/Not Resolved]
  - Blood glucose decreased [Unknown]
  - Vomiting [Unknown]
  - Diarrhoea [Unknown]
  - Abdominal distension [Unknown]
  - Nausea [Unknown]

NARRATIVE: CASE EVENT DATE: 20180521
